FAERS Safety Report 4507496-5 (Version None)
Quarter: 2004Q4

REPORT INFORMATION
  Report Type: 
  Country: None (occurrence: None)
  Receive Date: 20041123
  Receipt Date: 20041111
  Transmission Date: 20050328
  Serious: Yes (Other)
  Sender: FDA-Public Use
  Company Number: US-JNJFOC-20041103420

PATIENT
  Sex: Female
  Weight: 66.68 kg

DRUGS (8)
  1. REMICADE [Suspect]
     Dosage: 4 VIALS
     Route: 042
  2. REMICADE [Suspect]
     Indication: RHEUMATOID ARTHRITIS
     Route: 042
  3. HYDROCORTISONE [Concomitant]
     Indication: RHEUMATOID ARTHRITIS
  4. NOVAC [Concomitant]
  5. ZOLOFT [Concomitant]
     Indication: DEPRESSION
  6. LASIX [Concomitant]
  7. NEWVENT [Concomitant]
  8. LOREZAPAM [Concomitant]
     Indication: NERVOUSNESS

REACTIONS (3)
  - BONE PAIN [None]
  - COMA [None]
  - LYMPHADENOPATHY [None]
